FAERS Safety Report 8941318 (Version 2)
Quarter: 2012Q4

REPORT INFORMATION
  Report Type: 
  Country: CN (occurrence: CN)
  Receive Date: 20121203
  Receipt Date: 20121211
  Transmission Date: 20130627
  Serious: Yes (Other)
  Sender: FDA-Public Use
  Company Number: CN-ROCHE-1161992

PATIENT
  Age: 73 Year
  Sex: Female

DRUGS (2)
  1. ACTILYSE [Suspect]
     Indication: ISCHAEMIC STROKE
     Route: 042
  2. ACETYLSALICYLIC ACID [Suspect]
     Indication: ISCHAEMIC STROKE
     Route: 048

REACTIONS (3)
  - Haemorrhagic transformation stroke [Unknown]
  - Oedema [Unknown]
  - Haematoma [Unknown]
